FAERS Safety Report 6838749-3 (Version None)
Quarter: 2010Q3

REPORT INFORMATION
  Report Type: 
  Country: None (occurrence: None)
  Receive Date: 20100713
  Receipt Date: 20070618
  Transmission Date: 20110219
  Serious: No
  Sender: FDA-Public Use
  Company Number: US-PFIZER INC-2007043028

PATIENT
  Age: 70 Year
  Sex: Female
  Weight: 81.363 kg

DRUGS (6)
  1. CHANTIX [Suspect]
     Indication: SMOKING CESSATION THERAPY
     Dates: start: 20070416, end: 20070507
  2. SYNTHROID [Concomitant]
  3. PRINIVIL [Concomitant]
  4. HYDROCHLOROTHIAZIDE [Concomitant]
  5. MEVACOR [Concomitant]
  6. CALCITONIN [Concomitant]

REACTIONS (1)
  - NAUSEA [None]
